FAERS Safety Report 19487413 (Version 2)
Quarter: 2021Q3

REPORT INFORMATION
  Report Type: Spontaneous
  Country: JP (occurrence: JP)
  Receive Date: 20210702
  Receipt Date: 20210802
  Transmission Date: 20211014
  Serious: Yes (Hospitalization)
  Sender: FDA-Public Use
  Company Number: JP-ELI_LILLY_AND_COMPANY-JP202106013018

PATIENT
  Age: 65 Year
  Sex: Female
  Weight: 48 kg

DRUGS (1)
  1. OLUMIANT [Suspect]
     Active Substance: BARICITINIB
     Indication: RHEUMATOID ARTHRITIS
     Dosage: 2 MG, DAILY
     Route: 048
     Dates: start: 20200929, end: 20201124

REACTIONS (1)
  - Cerebellar infarction [Recovered/Resolved]

NARRATIVE: CASE EVENT DATE: 20201124
